FAERS Safety Report 4495663-9 (Version None)
Quarter: 2004Q4

REPORT INFORMATION
  Report Type: 
  Country: None (occurrence: None)
  Receive Date: 20041103
  Receipt Date: 20041021
  Transmission Date: 20050328
  Serious: Yes (Other)
  Sender: FDA-Public Use
  Company Number: 2004082272

PATIENT
  Age: 62 Year
  Sex: Female
  Weight: 50.8029 kg

DRUGS (1)
  1. ZITHROMAX [Suspect]
     Indication: BRONCHITIS
     Dosage: 500 MG (500 MG, 1 IN 1 D), ORAL
     Route: 048
     Dates: start: 20041016, end: 20041016

REACTIONS (12)
  - ANXIETY [None]
  - CARDIAC FLUTTER [None]
  - COUGH [None]
  - DYSPNOEA [None]
  - ERYTHEMA [None]
  - LACRIMATION INCREASED [None]
  - LARYNGEAL OEDEMA [None]
  - NASOPHARYNGITIS [None]
  - PALLOR [None]
  - PALPITATIONS [None]
  - PHARYNGEAL OEDEMA [None]
  - SHOCK [None]
